FAERS Safety Report 9373086 (Version 1)
Quarter: 2013Q2

REPORT INFORMATION
  Report Type: Spontaneous
  Country: CN (occurrence: CN)
  Receive Date: 20130627
  Receipt Date: 20130627
  Transmission Date: 20140414
  Serious: Yes (Hospitalization)
  Sender: FDA-Public Use
  Company Number: CN-PFIZER INC-2013188152

PATIENT
  Age: 25 Year
  Sex: Male

DRUGS (3)
  1. ZITHROMAX [Suspect]
     Indication: INFECTION
     Dosage: 1 TABLET, 2X/DAY
     Route: 048
     Dates: start: 20120730, end: 20120813
  2. CEFTRIAXONE SODIUM [Concomitant]
     Dosage: UNK
  3. AMBROXOL [Concomitant]
     Dosage: UNK

REACTIONS (3)
  - Drug-induced liver injury [Recovered/Resolved]
  - Cholecystitis chronic [Recovered/Resolved]
  - Hepatic steatosis [Recovered/Resolved]
